FAERS Safety Report 6055597-5 (Version None)
Quarter: 2009Q1

REPORT INFORMATION
  Report Type: 
  Country: None (occurrence: None)
  Receive Date: 20090128
  Receipt Date: 20090116
  Transmission Date: 20090719
  Serious: Yes (Hospitalization, Other)
  Sender: FDA-Public Use
  Company Number: GB-PFIZER INC-2005124881

PATIENT

DRUGS (6)
  1. AMLODIPINE BESILATE [Interacting]
     Indication: HYPERTENSION
     Route: 065
  2. SIMVASTATIN [Suspect]
     Indication: HYPERCHOLESTEROLAEMIA
     Route: 065
  3. WARFARIN [Suspect]
     Indication: MITRAL VALVE REPLACEMENT
     Route: 065
  4. BISOPROLOL [Concomitant]
     Indication: HYPERTENSION
     Route: 065
  5. SPIRONOLACTONE [Concomitant]
     Route: 065
  6. RAMIPRIL [Concomitant]
     Route: 065

REACTIONS (4)
  - AXONAL NEUROPATHY [None]
  - DRUG INTERACTION [None]
  - RECTAL HAEMORRHAGE [None]
  - RENAL FAILURE [None]
